FAERS Safety Report 24955381 (Version 1)
Quarter: 2025Q1

REPORT INFORMATION
  Report Type: Spontaneous
  Country: US (occurrence: None)
  Receive Date: 20250210
  Receipt Date: 20250210
  Transmission Date: 20250409
  Serious: Yes (Other)
  Sender: FDA-CTU
  Company Number: None

PATIENT
  Age: 27 Year
  Sex: Female

DRUGS (1)
  1. PAZOPANIB [Suspect]
     Active Substance: PAZOPANIB
     Dosage: FREQUENCY : DAILY;?
     Route: 048
     Dates: start: 20241213, end: 20250107

REACTIONS (5)
  - Thunderclap headache [None]
  - Brain fog [None]
  - Therapy cessation [None]
  - Subarachnoid haemorrhage [None]
  - Cerebral vasoconstriction [None]

NARRATIVE: CASE EVENT DATE: 20250103
